FAERS Safety Report 24980170 (Version 3)
Quarter: 2025Q2

REPORT INFORMATION
  Report Type: Spontaneous
  Country: GB (occurrence: GB)
  Receive Date: 20250218
  Receipt Date: 20250407
  Transmission Date: 20250717
  Serious: Yes (Hospitalization, Other)
  Sender: MYLAN
  Company Number: GB-MYLANLABS-2025M1000701

PATIENT
  Sex: Female

DRUGS (3)
  1. CLOZARIL [Suspect]
     Active Substance: CLOZAPINE
     Indication: Schizophrenia
  2. CLOZARIL [Suspect]
     Active Substance: CLOZAPINE
  3. CLOZARIL [Suspect]
     Active Substance: CLOZAPINE
     Dosage: 350 MILLIGRAM, QD (INCREASED DOSE)
     Dates: start: 202503

REACTIONS (6)
  - Hospitalisation [Unknown]
  - Mental impairment [Not Recovered/Not Resolved]
  - Anaemia [Unknown]
  - Product dose omission issue [Unknown]
  - Antipsychotic drug level decreased [Unknown]
  - Treatment noncompliance [Unknown]

NARRATIVE: CASE EVENT DATE: 20250325
